FAERS Safety Report 13732661 (Version 4)
Quarter: 2017Q3

REPORT INFORMATION
  Report Type: Report from Study
  Country: CA (occurrence: CA)
  Receive Date: 20170707
  Receipt Date: 20170928
  Transmission Date: 20171127
  Serious: Yes (Hospitalization)
  Sender: FDA-Public Use
  Company Number: CA-TAKEDA-2016TUS010600

PATIENT
  Age: 24 Year
  Sex: Female

DRUGS (4)
  1. VEDOLIZUMAB [Suspect]
     Active Substance: VEDOLIZUMAB
     Dosage: 300 MG, Q4WEEKS
     Route: 042
     Dates: start: 20170410
  2. VEDOLIZUMAB [Suspect]
     Active Substance: VEDOLIZUMAB
     Indication: COLITIS ULCERATIVE
     Dosage: 300 MG, UNK
     Route: 042
     Dates: start: 20160614
  3. VEDOLIZUMAB [Suspect]
     Active Substance: VEDOLIZUMAB
     Dosage: 600 MG, Q4WEEKS
     Route: 042
     Dates: start: 20170727
  4. PREDNISONE. [Concomitant]
     Active Substance: PREDNISONE
     Dosage: 30 MG, QD

REACTIONS (13)
  - Hospitalisation [Unknown]
  - Swelling face [Unknown]
  - Dizziness [Unknown]
  - Heart rate increased [Unknown]
  - Vomiting [Unknown]
  - Infusion site extravasation [Unknown]
  - Somnolence [Unknown]
  - Colitis ulcerative [Not Recovered/Not Resolved]
  - Eye disorder [Unknown]
  - Influenza like illness [Unknown]
  - Off label use [Unknown]
  - Nasopharyngitis [Unknown]
  - Fatigue [Unknown]

NARRATIVE: CASE EVENT DATE: 2016
